FAERS Safety Report 6490592-3 (Version None)
Quarter: 2009Q4

REPORT INFORMATION
  Report Type: 
  Country: None (occurrence: None)
  Receive Date: 20091211
  Receipt Date: 20091204
  Transmission Date: 20100525
  Serious: Yes (Hospitalization)
  Sender: FDA-Public Use
  Company Number: US-B.I. PHARMACEUTICALS,INC./RIDGEFIELD-2009-BP-06875YA

PATIENT
  Sex: Male
  Weight: 133 kg

DRUGS (11)
  1. TAMSULOSIN HCL [Suspect]
     Route: 048
  2. BLINDED THERAPY CAPSULE [Suspect]
     Indication: ARTHRITIS
     Route: 048
     Dates: start: 20071106
  3. NEXIUM [Concomitant]
     Dosage: 40 MG
     Route: 048
     Dates: start: 20071105
  4. GLUCOTROL [Concomitant]
     Route: 048
     Dates: start: 20011119
  5. GLUCOPHAGE [Concomitant]
     Route: 048
     Dates: start: 20090405
  6. LISINOPRIL [Concomitant]
     Route: 048
     Dates: start: 20060101
  7. NORVASC [Concomitant]
     Route: 048
     Dates: start: 20050910
  8. PRAVACHOL [Concomitant]
     Route: 048
     Dates: start: 20070908
  9. NITROGLYCERIN [Concomitant]
     Route: 048
     Dates: start: 19980101
  10. CIALIS [Concomitant]
     Route: 048
     Dates: start: 20050101
  11. ASPIRIN [Concomitant]
     Route: 048
     Dates: start: 19980101

REACTIONS (3)
  - BENIGN PROSTATIC HYPERPLASIA [None]
  - CARDIAC FAILURE CONGESTIVE [None]
  - CONDITION AGGRAVATED [None]
